FAERS Safety Report 11192264 (Version 1)
Quarter: 2015Q2

REPORT INFORMATION
  Report Type: Spontaneous
  Country: BR (occurrence: BR)
  Receive Date: 20150616
  Receipt Date: 20150616
  Transmission Date: 20150821
  Serious: Yes (Hospitalization)
  Sender: FDA-Public Use
  Company Number: BR-PFIZER INC-2015195150

PATIENT
  Age: 61 Year
  Sex: Female
  Weight: 63 kg

DRUGS (3)
  1. LYRICA [Suspect]
     Active Substance: PREGABALIN
     Dosage: UNK
     Route: 048
  2. PRISTIQ EXTENDED RELEASE [Concomitant]
     Active Substance: DESVENLAFAXINE SUCCINATE
     Indication: DEPRESSION
     Dosage: 2 TABLETS DAILY
     Dates: start: 201503
  3. LIPITOR [Suspect]
     Active Substance: ATORVASTATIN CALCIUM
     Dosage: UNK
     Route: 048

REACTIONS (7)
  - Liver injury [Unknown]
  - Fibromyalgia [Unknown]
  - Amnesia [Unknown]
  - Accident [Unknown]
  - Joint injury [Unknown]
  - Rib fracture [Unknown]
  - Tendon injury [Unknown]

NARRATIVE: CASE EVENT DATE: 2014
